FAERS Safety Report 10477568 (Version 1)
Quarter: 2014Q3

REPORT INFORMATION
  Report Type: Spontaneous
  Country: BE (occurrence: None)
  Receive Date: 20140924
  Receipt Date: 20140924
  Transmission Date: 20150326
  Serious: Yes (Death, Hospitalization)
  Sender: FDA-Public Use
  Company Number: 2014HINLIT0878

PATIENT
  Age: 67 Year
  Sex: Male

DRUGS (9)
  1. ABACAVIR (ABACAVIR) [Suspect]
     Active Substance: ABACAVIR
     Indication: HIV INFECTION
  2. LOPINAVIR+RITONAVIR [Suspect]
     Active Substance: LOPINAVIR\RITONAVIR
     Indication: HIV INFECTION
  3. VANCOMYCIN (VANCOMYCIN) [Concomitant]
     Active Substance: VANCOMYCIN
  4. TENOFOVIR (TENOFOVIR) UNKNOWN [Suspect]
     Active Substance: TENOFOVIR
     Indication: HIV INFECTION
  5. LAMIVUDINE (LAMIVUDINE) [Suspect]
     Active Substance: LAMIVUDINE
     Indication: HIV INFECTION
  6. EMTRICITABINE (EMTRICITABINE) UNKNOWN [Suspect]
     Active Substance: EMTRICITABINE
     Indication: HIV INFECTION
  7. CLARITROMYCINE (CLARITROMYCINE) [Concomitant]
  8. ETHAMBUTOL [Concomitant]
     Active Substance: ETHAMBUTOL HYDROCHLORIDE
  9. METHYLPREDNISOLONE (METHYLPREDNISOLONE) [Suspect]
     Active Substance: METHYLPREDNISOLONE
     Indication: PRODUCT USED FOR UNKNOWN INDICATION

REACTIONS (23)
  - Pseudomonas infection [None]
  - Immune reconstitution inflammatory syndrome [None]
  - Renal tubular necrosis [None]
  - Tubulointerstitial nephritis [None]
  - Thyroid gland abscess [None]
  - Renal abscess [None]
  - Adrenal atrophy [None]
  - Enterococcal infection [None]
  - Toxicity to various agents [None]
  - Renal failure acute [None]
  - Lung infection [None]
  - Cytomegalovirus colitis [None]
  - Pulmonary infarction [None]
  - Myocardiac abscess [None]
  - Dialysis [None]
  - Bronchopulmonary aspergillosis [None]
  - Cytomegalovirus infection [None]
  - Multi-organ failure [None]
  - Aspergillus infection [None]
  - Scar [None]
  - Pericardial effusion [None]
  - Enterobacter infection [None]
  - Pulmonary haemorrhage [None]
